FAERS Safety Report 8625374-7 (Version None)
Quarter: 2012Q3

REPORT INFORMATION
  Report Type: 
  Country: None (occurrence: None)
  Receive Date: 20120827
  Receipt Date: 20120821
  Transmission Date: 20120928
  Serious: Yes (Other)
  Sender: FDA-Public Use
  Company Number: US-PFIZER INC-2012175280

PATIENT
  Age: 42 Year
  Sex: Female
  Weight: 58.05 kg

DRUGS (11)
  1. NEURONTIN [Suspect]
     Indication: NEUROPATHY PERIPHERAL
  2. CLONIDINE [Concomitant]
     Indication: ARRHYTHMIA
     Dosage: 0.2 MG, 3X/DAY
  3. NEURONTIN [Suspect]
     Indication: CONVULSION
     Dosage: 600 MG, 4X/DAY
     Dates: start: 20010101
  4. VISTARIL [Suspect]
     Dosage: 50 MG, 4X/DAY
  5. ATENOLOL [Concomitant]
     Indication: HYPERTENSION
     Dosage: 100 MG, 2X/DAY
  6. OXYCODONE [Concomitant]
     Indication: PAIN
     Dosage: 10 MG, AS NEEDED
  7. NEXIUM [Concomitant]
     Indication: GASTROOESOPHAGEAL REFLUX DISEASE
     Dosage: UNK, 2X/DAY
  8. LIDOCAINE [Concomitant]
     Indication: PAIN
     Dosage: UNK, AS NEEDED
  9. DEMADEX [Concomitant]
     Indication: OEDEMA
     Dosage: 20 MG, AS NEEDED
  10. SYNTHROID [Concomitant]
     Indication: HYPOTHYROIDISM
     Dosage: 0.88 UG, DAILY
  11. SOMA [Concomitant]
     Indication: MUSCLE SPASMS
     Dosage: 350 MG, 4X/DAY

REACTIONS (3)
  - VULVAL CANCER [None]
  - BREAST CANCER RECURRENT [None]
  - BREAST CANCER [None]
